FAERS Safety Report 8282805-2 (Version None)
Quarter: 2012Q2

REPORT INFORMATION
  Report Type: 
  Country: None (occurrence: None)
  Receive Date: 20120413
  Receipt Date: 20120330
  Transmission Date: 20120825
  Serious: Yes (Other)
  Sender: FDA-Public Use
  Company Number: ES-ROCHE-1059023

PATIENT
  Age: 68 Year
  Sex: Female

DRUGS (3)
  1. ENALAPRIL MALEATE [Suspect]
     Indication: PRODUCT USED FOR UNKNOWN INDICATION
  2. TOCILIZUMAB [Suspect]
     Route: 042
  3. TOCILIZUMAB [Suspect]
     Indication: RETROPERITONEAL FIBROSIS
     Route: 042

REACTIONS (4)
  - BLOOD CREATININE INCREASED [None]
  - NEUTROPENIA [None]
  - BLOOD UREA INCREASED [None]
  - RENAL IMPAIRMENT [None]
